FAERS Safety Report 26007023 (Version 1)
Quarter: 2025Q4

REPORT INFORMATION
  Report Type: Spontaneous
  Country: US (occurrence: US)
  Receive Date: 20251106
  Receipt Date: 20251106
  Transmission Date: 20260118
  Serious: Yes (Hospitalization)
  Sender: B. BRAUN MEDICAL INC.
  Company Number: None

PATIENT
  Age: 64 Year
  Sex: Male

DRUGS (3)
  1. SODIUM CHLORIDE [Suspect]
     Active Substance: SODIUM CHLORIDE
     Indication: Fluid replacement
     Dosage: 1 L OF NORMAL SALINE PER HOUR, FOLLOWED BY 1 L OF D5 ? NORMAL SALINE PER HOUR.
  2. SODIUM CHLORIDE [Suspect]
     Active Substance: SODIUM CHLORIDE
     Indication: Diabetic ketoacidosis
  3. INSULIN NOS [Suspect]
     Active Substance: INSULIN NOS
     Indication: Insulin therapy

REACTIONS (3)
  - Scrotal oedema [Recovered/Resolved]
  - Hypoalbuminaemia [Unknown]
  - Overdose [Unknown]
